FAERS Safety Report 7809032-4 (Version None)
Quarter: 2011Q4

REPORT INFORMATION
  Report Type: 
  Country: None (occurrence: None)
  Receive Date: 20111012
  Receipt Date: 20111012
  Transmission Date: 20120403
  Serious: No
  Sender: FDA-Public Use
  Company Number: None

PATIENT
  Sex: Female
  Weight: 64.41 kg

DRUGS (1)
  1. TRANSDERM SCOP [Suspect]
     Indication: MOTION SICKNESS
     Dosage: 1.0 MG
     Route: 023
     Dates: start: 20110806, end: 20110809

REACTIONS (4)
  - ACCOMMODATION DISORDER [None]
  - VISION BLURRED [None]
  - MYDRIASIS [None]
  - VISUAL IMPAIRMENT [None]
